FAERS Safety Report 23828448 (Version 2)
Quarter: 2024Q2

REPORT INFORMATION
  Report Type: Spontaneous
  Country: IT (occurrence: None)
  Receive Date: 20240508
  Receipt Date: 20240523
  Transmission Date: 20240716
  Serious: Yes (Other)
  Sender: FDA-Public Use
  Company Number: None

PATIENT
  Age: 58 Year
  Sex: Male

DRUGS (1)
  1. OCREVUS [Suspect]
     Active Substance: OCRELIZUMAB
     Indication: Relapsing-remitting multiple sclerosis
     Route: 065
     Dates: start: 20240129, end: 20240212

REACTIONS (5)
  - Facial paresis [Recovering/Resolving]
  - Hyperpyrexia [Recovering/Resolving]
  - Herpes simplex meningitis [Recovering/Resolving]
  - Headache [Recovering/Resolving]
  - Episcleritis [Recovering/Resolving]

NARRATIVE: CASE EVENT DATE: 20240301
